FAERS Safety Report 5160234-8 (Version None)
Quarter: 2006Q4

REPORT INFORMATION
  Report Type: 
  Country: None (occurrence: None)
  Receive Date: 20061120
  Receipt Date: 20061107
  Transmission Date: 20070319
  Serious: Yes (Other)
  Sender: FDA-Public Use
  Company Number: 232245

PATIENT
  Age: 42 Year
  Sex: Male

DRUGS (3)
  1. AVASTIN [Suspect]
     Indication: METASTATIC MALIGNANT MELANOMA
  2. CARBOPLATIN [Suspect]
     Indication: METASTATIC MALIGNANT MELANOMA
  3. PACLITAXEL [Suspect]
     Indication: METASTATIC MALIGNANT MELANOMA

REACTIONS (1)
  - HEPATIC FAILURE [None]
